FAERS Safety Report 20539599 (Version 1)
Quarter: 2022Q1

REPORT INFORMATION
  Report Type: Spontaneous
  Country: GB (occurrence: GB)
  Receive Date: 20220302
  Receipt Date: 20220302
  Transmission Date: 20220423
  Serious: Yes (Other)
  Sender: FDA-Public Use
  Company Number: None

PATIENT
  Age: 43 Year
  Sex: Female
  Weight: 41.27 kg

DRUGS (4)
  1. FENTANYL [Suspect]
     Active Substance: FENTANYL
     Indication: Crohn^s disease
     Dosage: 25 YEARS AGO,?2 12 MCG PATCHES
     Route: 062
  2. FENTANYL [Suspect]
     Active Substance: FENTANYL
     Route: 062
  3. FENTANYL [Suspect]
     Active Substance: FENTANYL
     Dosage: 2 12MCG PATCHES
     Route: 062
  4. OXYCODONE [Interacting]
     Active Substance: OXYCODONE
     Indication: Anaesthesia
     Route: 051
     Dates: start: 20211029, end: 20211029

REACTIONS (6)
  - Negative thoughts [Recovered/Resolved with Sequelae]
  - Drug interaction [Unknown]
  - Hyperventilation [Unknown]
  - Sedation [Unknown]
  - Withdrawal syndrome [Unknown]
  - Treatment noncompliance [Unknown]

NARRATIVE: CASE EVENT DATE: 20211029
